FAERS Safety Report 4538945-4 (Version None)
Quarter: 2004Q4

REPORT INFORMATION
  Report Type: 
  Country: None (occurrence: None)
  Receive Date: 20041223
  Receipt Date: 20040923
  Transmission Date: 20050328
  Serious: No
  Sender: FDA-Public Use
  Company Number: US-JNJFOC-20040908609

PATIENT
  Age: 20 Year
  Sex: Female
  Weight: 49.8957 kg

DRUGS (5)
  1. ORTHO EVRA [Suspect]
     Indication: MENSTRUATION IRREGULAR
     Dosage: 1 DOSE(S), 3 IN 4 WEEK, TRANSDERMAL
     Route: 062
  2. SINGULAIR [Concomitant]
  3. ZYRTEX (CETIRIZINE HYDROCHLORIDE) [Concomitant]
  4. PROVENTAL (SALBUTAMOL) [Concomitant]
  5. ADAVAN (ACTIVAROL) [Concomitant]

REACTIONS (4)
  - ABDOMINAL PAIN UPPER [None]
  - DIZZINESS [None]
  - HEADACHE [None]
  - NAUSEA [None]
